FAERS Safety Report 5005781-4 (Version None)
Quarter: 2006Q1

REPORT INFORMATION
  Report Type: 
  Country: None (occurrence: None)
  Receive Date: 20060321
  Receipt Date: 20050309
  Transmission Date: 20060701
  Serious: Yes (Disabling)
  Sender: FDA-Public Use
  Company Number: 2004119608

PATIENT
  Age: 56 Year
  Sex: Male

DRUGS (5)
  1. XALATAN [Suspect]
     Indication: ILL-DEFINED DISORDER
     Dosage: (1 IN 1 D), OPHTHALMIC
     Route: 047
     Dates: start: 20020801
  2. DEPAKOTE [Suspect]
     Indication: BIPOLAR DISORDER
  3. PINDOLOL [Concomitant]
  4. HYDROCHLOROTHIAZIDE [Concomitant]
  5. TAMSULOSIN HYDROCHLORIDE (TAMSULOSIN HYDROCHLORIDE) [Concomitant]

REACTIONS (3)
  - ARTHRALGIA [None]
  - PAIN [None]
  - SHOULDER PAIN [None]
